FAERS Safety Report 4677361-1 (Version None)
Quarter: 2005Q2

REPORT INFORMATION
  Report Type: 
  Country: None (occurrence: None)
  Receive Date: 20050505
  Receipt Date: 20050505
  Transmission Date: 20051028
  Serious: Yes (Hospitalization)
  Sender: FDA-Public Use
  Company Number: None

PATIENT
  Age: 55 Year
  Sex: Female

DRUGS (1)
  1. IBUPROFEN [Suspect]
     Dosage: 800 MG Q 6 HOURS FOR 3 DOSES

REACTIONS (3)
  - ANURIA [None]
  - HYPOTENSION [None]
  - RENAL FAILURE ACUTE [None]
